FAERS Safety Report 5707301-5 (Version None)
Quarter: 2008Q2

REPORT INFORMATION
  Report Type: 
  Country: None (occurrence: None)
  Receive Date: 20080416
  Receipt Date: 20080407
  Transmission Date: 20081010
  Serious: Yes (Other)
  Sender: FDA-Public Use
  Company Number: US-JNJFOC-20080402964

PATIENT
  Sex: Female

DRUGS (4)
  1. IBUPROFEN [Suspect]
     Indication: DRUG USE FOR UNKNOWN INDICATION
  2. ALEVE [Suspect]
     Indication: DRUG USE FOR UNKNOWN INDICATION
  3. LYRICA [Suspect]
     Indication: FIBROMYALGIA
  4. CELEBREX [Suspect]
     Indication: ARTHRITIS

REACTIONS (6)
  - ARTHRITIS [None]
  - CARPAL TUNNEL SYNDROME [None]
  - FIBROMYALGIA [None]
  - INTERVERTEBRAL DISC PROTRUSION [None]
  - SWELLING FACE [None]
  - ULCER [None]
